FAERS Safety Report 9741733 (Version 1)
Quarter: 2013Q4

REPORT INFORMATION
  Report Type: Report from Study
  Country: JP (occurrence: JP)
  Receive Date: 20131210
  Receipt Date: 20131210
  Transmission Date: 20140711
  Serious: Yes (Hospitalization)
  Sender: FDA-Public Use
  Company Number: JP-ROCHE-1317101

PATIENT
  Age: 61 Year
  Sex: Female
  Weight: 60 kg

DRUGS (14)
  1. OMALIZUMAB [Suspect]
     Indication: ASTHMA
     Route: 058
     Dates: start: 20111003
  2. OMALIZUMAB [Suspect]
     Route: 065
     Dates: start: 20111205
  3. OMALIZUMAB [Suspect]
     Route: 065
     Dates: start: 20120111
  4. QVAR [Concomitant]
  5. SEREVENT [Concomitant]
     Route: 065
     Dates: start: 20110415
  6. HOKUNALIN [Concomitant]
     Route: 065
     Dates: start: 20110415
  7. SINGULAIR [Concomitant]
     Route: 065
     Dates: start: 20110415
  8. THEODUR [Concomitant]
     Route: 065
     Dates: start: 20110415
  9. DECADRON [Concomitant]
     Route: 065
     Dates: start: 20110629
  10. DECADRON [Concomitant]
     Route: 065
     Dates: start: 20120226
  11. MEPTIN AIR [Concomitant]
     Route: 065
     Dates: start: 20110415
  12. MEDET [Concomitant]
     Route: 065
     Dates: start: 20110415
  13. BENET [Concomitant]
     Route: 065
     Dates: start: 20110415
  14. GABAPEN [Concomitant]
     Route: 065
     Dates: start: 20110415

REACTIONS (1)
  - Asthma [Recovering/Resolving]
